FAERS Safety Report 16971493 (Version 1)
Quarter: 2019Q4

REPORT INFORMATION
  Report Type: Spontaneous
  Country: US (occurrence: US)
  Receive Date: 20191029
  Receipt Date: 20191029
  Transmission Date: 20200122
  Serious: Yes (Hospitalization)
  Sender: FDA-Public Use
  Company Number: US-TEVA-2019-US-1128889

PATIENT
  Age: 40 Year
  Sex: Female

DRUGS (3)
  1. GABAPENTIN. [Suspect]
     Active Substance: GABAPENTIN
     Indication: SUICIDE ATTEMPT
     Dosage: NUMBER OF DOSAGES: 1
     Route: 065
  2. DAPSONE. [Suspect]
     Active Substance: DAPSONE
     Indication: CHRONIC SPONTANEOUS URTICARIA
     Dosage: IN A SUICIDE ATTEMPT, 100MG
     Route: 065
  3. DAPSONE. [Suspect]
     Active Substance: DAPSONE
     Indication: SUICIDE ATTEMPT

REACTIONS (3)
  - Methaemoglobinaemia [Unknown]
  - Suicide attempt [Unknown]
  - Intentional overdose [Unknown]
